FAERS Safety Report 17521378 (Version 2)
Quarter: 2020Q1

REPORT INFORMATION
  Report Type: Spontaneous
  Country: JP (occurrence: JP)
  Receive Date: 20200310
  Receipt Date: 20200319
  Transmission Date: 20200409
  Serious: Yes (Other)
  Sender: FDA-Public Use
  Company Number: JP-009507513-2003JPN000647J

PATIENT
  Age: 6 Decade
  Sex: Male

DRUGS (13)
  1. XALATAN [Concomitant]
     Active Substance: LATANOPROST
     Dosage: UNK
     Route: 065
  2. ZETIA [Suspect]
     Active Substance: EZETIMIBE
     Indication: HYPERCHOLESTEROLAEMIA
     Dosage: 5 MILLIGRAM/DAY
     Route: 048
     Dates: start: 20181218
  3. CEREKINON [Concomitant]
     Active Substance: TRIMEBUTINE
     Dosage: UNK
     Route: 065
  4. NEXIUM [Concomitant]
     Active Substance: ESOMEPRAZOLE MAGNESIUM
     Dosage: UNK
     Route: 065
  5. CONIEL [Concomitant]
     Active Substance: BENIDIPINE HYDROCHLORIDE
     Dosage: UNK
     Route: 065
  6. BAYASPIRIN [Suspect]
     Active Substance: ASPIRIN
     Indication: THROMBOSIS PROPHYLAXIS
     Dosage: 100 MILLIGRAM/DAY
     Route: 048
     Dates: start: 20200128
  7. TROCHES(COMP.) [Concomitant]
     Dosage: UNK
     Route: 065
  8. REPATHA [Concomitant]
     Active Substance: EVOLOCUMAB
     Dosage: UNK
     Route: 065
  9. DIQUAS [Concomitant]
     Active Substance: DIQUAFOSOL TETRASODIUM
     Dosage: UNK
     Route: 065
  10. MYSLEE [Concomitant]
     Active Substance: ZOLPIDEM TARTRATE
     Dosage: UNK
     Route: 065
  11. DEPAS [Concomitant]
     Dosage: UNK
     Route: 065
  12. AZULENE [Concomitant]
     Active Substance: AZULENE
     Dosage: UNK
     Route: 065
  13. CLARITH [Concomitant]
     Active Substance: CLARITHROMYCIN
     Dosage: UNK
     Route: 065

REACTIONS (1)
  - Leukoplakia oral [Not Recovered/Not Resolved]
